FAERS Safety Report 9240185 (Version 1)
Quarter: 2013Q1

REPORT INFORMATION
  Report Type: Spontaneous
  Country: US (occurrence: None)
  Receive Date: 20121119
  Receipt Date: 20121119
  Transmission Date: 20140127
  Serious: Yes (Hospitalization, Other)
  Sender: FDA-Public Use
  Company Number: 069462

PATIENT
  Age: 69 Year
  Sex: Female
  Weight: 77.1 kg

DRUGS (5)
  1. LACOSAMIDE [Suspect]
     Indication: CONVULSION
     Dosage: DAY TIME AND NIGHT TIME?
     Dates: start: 20121018, end: 20121019
  2. LISINOPRIL [Concomitant]
  3. SIMVASTATIN [Concomitant]
  4. UNKNOWN [Concomitant]
  5. DILTIAZEM [Concomitant]

REACTIONS (1)
  - Heart rate decreased [None]
